FAERS Safety Report 4274688-2 (Version None)
Quarter: 2004Q1

REPORT INFORMATION
  Report Type: 
  Country: None (occurrence: None)
  Receive Date: 20040115
  Receipt Date: 20040105
  Transmission Date: 20041129
  Serious: Yes (Life-Threatening, Hospitalization)
  Sender: FDA-Public Use
  Company Number: FR-JNJFOC-20030905941

PATIENT
  Age: 68 Year
  Sex: Female
  Weight: 50 kg

DRUGS (7)
  1. REMINYL [Suspect]
     Indication: COGNITIVE DISORDER
     Dosage: 4 MG, 2 IN 1 DAY, ORAL
     Route: 047
     Dates: start: 20030813, end: 20030826
  2. IXEL (MILNACIPRAN) [Concomitant]
  3. FENOFIBRATE [Concomitant]
  4. DITROPAN (TABLETS)  OXYBUTYNIN [Concomitant]
  5. CLIMASTON (CLIMASTON) TABLETS [Concomitant]
  6. ENDOTELON (ENDOTELON) [Concomitant]
  7. TRAMADOL HCL [Concomitant]

REACTIONS (9)
  - ACINETOBACTER INFECTION [None]
  - CEREBRAL ATROPHY [None]
  - FOLLICULITIS [None]
  - HAEMORRHAGE INTRACRANIAL [None]
  - HEMIPLEGIA [None]
  - HYPERTENSION [None]
  - NUCLEAR MAGNETIC RESONANCE IMAGING BRAIN ABNORMAL [None]
  - SINUS TACHYCARDIA [None]
  - SUPERINFECTION LUNG [None]
